FAERS Safety Report 6662258-8 (Version None)
Quarter: 2010Q1

REPORT INFORMATION
  Report Type: 
  Country: None (occurrence: None)
  Receive Date: 20100331
  Receipt Date: 20100324
  Transmission Date: 20100710
  Serious: Yes (Other)
  Sender: FDA-Public Use
  Company Number: AU-BAXTER-2010BH008066

PATIENT
  Age: 77 Year
  Sex: Female
  Weight: 70 kg

DRUGS (7)
  1. SUPRANE [Suspect]
     Indication: DRUG USE FOR UNKNOWN INDICATION
     Route: 055
  2. DALTEPARIN [Suspect]
     Indication: DRUG USE FOR UNKNOWN INDICATION
     Route: 058
  3. GENTAMICIN [Suspect]
     Indication: DRUG USE FOR UNKNOWN INDICATION
     Route: 065
  4. KEFLIN [Suspect]
     Indication: DRUG USE FOR UNKNOWN INDICATION
     Route: 065
  5. PARACETAMOL [Suspect]
     Indication: DRUG USE FOR UNKNOWN INDICATION
     Route: 048
  6. KEFLIN [Concomitant]
     Route: 065
  7. PARACETAMOL [Concomitant]
     Route: 048

REACTIONS (2)
  - HEPATIC ENZYME INCREASED [None]
  - HEPATITIS CHOLESTATIC [None]
